FAERS Safety Report 16480315 (Version 1)
Quarter: 2019Q2

REPORT INFORMATION
  Report Type: Spontaneous
  Country: US (occurrence: US)
  Receive Date: 20190626
  Receipt Date: 20190626
  Transmission Date: 20190711
  Serious: Yes (Hospitalization)
  Sender: FDA-Public Use
  Company Number: US-PFIZER INC-2019271151

PATIENT
  Age: 64 Year
  Sex: Male
  Weight: 102.51 kg

DRUGS (2)
  1. LYRICA [Suspect]
     Active Substance: PREGABALIN
     Indication: FIBROMYALGIA
     Dosage: 100 MG, 1X/DAY (IN THE EVENING)
  2. LYRICA [Suspect]
     Active Substance: PREGABALIN
     Dosage: 50 MG, 2X/DAY (50 MG IN THE MORNING AND 50 MG IN THE EVENING)

REACTIONS (3)
  - Drug ineffective [Unknown]
  - Withdrawal syndrome [Unknown]
  - Pain [Unknown]
